FAERS Safety Report 6881375-0 (Version None)
Quarter: 2010Q3

REPORT INFORMATION
  Report Type: 
  Country: None (occurrence: None)
  Receive Date: 20100728
  Receipt Date: 20100728
  Transmission Date: 20110219
  Serious: No
  Sender: FDA-Public Use
  Company Number: None

PATIENT
  Age: 23 Year
  Sex: Female
  Weight: 72.5755 kg

DRUGS (1)
  1. OCELA [Suspect]
     Indication: CONTRACEPTION
     Dosage: ONCE A DAY
     Dates: start: 20090301, end: 20100310

REACTIONS (1)
  - CHOLECYSTECTOMY [None]
